FAERS Safety Report 6690821-7 (Version None)
Quarter: 2010Q2

REPORT INFORMATION
  Report Type: 
  Country: None (occurrence: None)
  Receive Date: 20100421
  Receipt Date: 20100420
  Transmission Date: 20101027
  Serious: Yes (Hospitalization)
  Sender: FDA-Public Use
  Company Number: DE-ROXANE LABORATORIES, INC.-2010-RO-00439RO

PATIENT
  Age: 65 Year
  Sex: Female

DRUGS (3)
  1. ACARBOSE [Suspect]
     Indication: TYPE 2 DIABETES MELLITUS
     Dosage: 150 MG
  2. CIPROFLOXACIN [Concomitant]
     Indication: DIVERTICULITIS
  3. OXYGEN [Concomitant]
     Indication: PNEUMATOSIS INTESTINALIS
     Route: 045

REACTIONS (2)
  - DIVERTICULUM [None]
  - PNEUMATOSIS INTESTINALIS [None]
